FAERS Safety Report 6818019-X (Version None)
Quarter: 2010Q3

REPORT INFORMATION
  Report Type: 
  Country: None (occurrence: None)
  Receive Date: 20100706
  Receipt Date: 20100702
  Transmission Date: 20110219
  Serious: Yes (Other)
  Sender: FDA-Public Use
  Company Number: UA-AMGEN-KDC415681

PATIENT
  Sex: Female

DRUGS (2)
  1. DENOSUMAB [Suspect]
     Indication: METASTASES TO BONE
     Route: 058
     Dates: start: 20090805, end: 20100514
  2. CALCIUM CARBONATE/VITAMIN D [Concomitant]
     Route: 048

REACTIONS (1)
  - OSTEONECROSIS [None]
